FAERS Safety Report 6733883-0 (Version None)
Quarter: 2010Q2

REPORT INFORMATION
  Report Type: 
  Country: None (occurrence: None)
  Receive Date: 20100520
  Receipt Date: 20100513
  Transmission Date: 20101027
  Serious: Yes (Life-Threatening, Hospitalization)
  Sender: FDA-Public Use
  Company Number: CL-ROCHE-702242

PATIENT
  Sex: Male

DRUGS (1)
  1. METHOXY POLYETHYLENE GLYCOL-EPOETIN BETA [Suspect]
     Indication: ANAEMIA
     Dosage: STOP DATE: MAY 2010
     Route: 065
     Dates: start: 20091201, end: 20100501

REACTIONS (2)
  - ANAEMIA [None]
  - PNEUMONIA [None]
